FAERS Safety Report 6271437-3 (Version None)
Quarter: 2009Q3

REPORT INFORMATION
  Report Type: 
  Country: None (occurrence: None)
  Receive Date: 20090717
  Receipt Date: 20090708
  Transmission Date: 20100115
  Serious: Yes (Death)
  Sender: FDA-Public Use
  Company Number: US-JNJFOC-20090701710

PATIENT
  Sex: Male
  Weight: 88.45 kg

DRUGS (5)
  1. REMICADE [Suspect]
     Route: 042
  2. REMICADE [Suspect]
     Indication: CROHN'S DISEASE
     Route: 042
  3. ACETAMINOPHEN [Concomitant]
     Indication: PREMEDICATION
  4. ANTIHISTAMINE [Concomitant]
     Indication: PREMEDICATION
  5. CORTICOSTEROIDS [Concomitant]
     Indication: PREMEDICATION

REACTIONS (1)
  - RENAL FAILURE [None]
